FAERS Safety Report 6183382-2 (Version None)
Quarter: 2009Q2

REPORT INFORMATION
  Report Type: 
  Country: None (occurrence: None)
  Receive Date: 20090507
  Receipt Date: 20090423
  Transmission Date: 20091009
  Serious: Yes (Hospitalization)
  Sender: FDA-Public Use
  Company Number: FR-GENENTECH-282399

PATIENT
  Sex: Female

DRUGS (2)
  1. MABTHERA [Suspect]
     Dosage: 1 DF, UNK
     Route: 042
     Dates: start: 20090317
  2. METOJECT [Concomitant]
     Indication: DRUG USE FOR UNKNOWN INDICATION
     Dosage: UNK
     Dates: start: 20080601

REACTIONS (2)
  - LIP OEDEMA [None]
  - TOXIC SKIN ERUPTION [None]
